FAERS Safety Report 16696920 (Version 1)
Quarter: 2019Q3

REPORT INFORMATION
  Report Type: Spontaneous
  Country: US (occurrence: US)
  Receive Date: 20190813
  Receipt Date: 20190813
  Transmission Date: 20191004
  Serious: No
  Sender: FDA-Public Use
  Company Number: US-PFIZER INC-2019337022

PATIENT
  Age: 65 Year
  Sex: Female
  Weight: 59.87 kg

DRUGS (1)
  1. CHANTIX [Suspect]
     Active Substance: VARENICLINE TARTRATE
     Indication: SMOKING CESSATION THERAPY
     Dosage: 1 MG, 2X/DAY (1 EVERY MORNING AND 1 IN THE EVENING)
     Route: 048
     Dates: start: 2009

REACTIONS (2)
  - Product dose omission [Unknown]
  - Nausea [Unknown]
